FAERS Safety Report 5850788-8 (Version None)
Quarter: 2008Q3

REPORT INFORMATION
  Report Type: 
  Country: None (occurrence: None)
  Receive Date: 20080820
  Receipt Date: 20080808
  Transmission Date: 20090109
  Serious: Yes (Death)
  Sender: FDA-Public Use
  Company Number: JP-ELI_LILLY_AND_COMPANY-JP200808001771

PATIENT
  Age: 62 Year
  Sex: Female

DRUGS (7)
  1. GEMZAR [Suspect]
     Indication: PANCREATIC CARCINOMA
     Dosage: 1400 MG, OTHER
     Route: 042
     Dates: start: 20080725, end: 20080725
  2. GEMZAR [Suspect]
     Dosage: 1150 MG, OTHER
     Route: 042
     Dates: start: 20080808, end: 20080808
  3. OXYCONTIN [Concomitant]
     Route: 065
  4. NOVAMIN [Concomitant]
     Route: 065
  5. AMARYL [Concomitant]
     Route: 065
  6. LOXONIN [Concomitant]
     Route: 065
  7. MUCOSTA [Concomitant]
     Route: 065

REACTIONS (3)
  - MYOCARDIAL INFARCTION [None]
  - PLATELET COUNT DECREASED [None]
  - SUDDEN DEATH [None]
